FAERS Safety Report 5917714-4 (Version None)
Quarter: 2008Q4

REPORT INFORMATION
  Report Type: 
  Country: None (occurrence: None)
  Receive Date: 20081009
  Receipt Date: 20080929
  Transmission Date: 20090506
  Serious: Yes (Death, Life-Threatening, Hospitalization, Other)
  Sender: FDA-Public Use
  Company Number: 2008AP002576

PATIENT
  Age: 56 Year
  Sex: Male

DRUGS (5)
  1. METFORMIN HCL [Suspect]
     Indication: TYPE 2 DIABETES MELLITUS
     Dosage: 500 MG;BID;PO
     Route: 048
  2. PANTOPRAZOLE SODIUM [Concomitant]
  3. LEVOTHYROXINE SODIUM [Concomitant]
  4. GLYBURIDE [Concomitant]
  5. CIPROFLOXACIN [Concomitant]

REACTIONS (23)
  - ABDOMINAL PAIN [None]
  - AGITATION [None]
  - ALANINE AMINOTRANSFERASE INCREASED [None]
  - ASPARTATE AMINOTRANSFERASE INCREASED [None]
  - BACK PAIN [None]
  - CARDIAC ARREST [None]
  - CARDIO-RESPIRATORY ARREST [None]
  - COOMBS POSITIVE HAEMOLYTIC ANAEMIA [None]
  - DYSPNOEA [None]
  - ELECTROMECHANICAL DISSOCIATION [None]
  - HAEMATURIA [None]
  - HEART RATE INCREASED [None]
  - HYPERKALAEMIA [None]
  - HYPOTENSION [None]
  - LEUKOCYTOSIS [None]
  - METABOLIC ACIDOSIS [None]
  - PALPITATIONS [None]
  - POOR QUALITY SLEEP [None]
  - RENAL FAILURE ACUTE [None]
  - RESPIRATORY DISTRESS [None]
  - RESPIRATORY RATE INCREASED [None]
  - URINARY TRACT INFECTION [None]
  - URINE COLOUR ABNORMAL [None]
